FAERS Safety Report 24994614 (Version 1)
Quarter: 2025Q1

REPORT INFORMATION
  Report Type: Spontaneous
  Country: US (occurrence: None)
  Receive Date: 20250220
  Receipt Date: 20250220
  Transmission Date: 20250408
  Serious: Yes (Hospitalization)
  Sender: FDA-CTU
  Company Number: None

PATIENT
  Age: 25 Year
  Sex: Female
  Weight: 57.6 kg

DRUGS (1)
  1. MODAFINIL [Suspect]
     Active Substance: MODAFINIL
     Indication: Narcolepsy
     Dates: start: 20240905, end: 20241006

REACTIONS (18)
  - Headache [None]
  - Decreased appetite [None]
  - Therapy change [None]
  - Arthralgia [None]
  - Myalgia [None]
  - Pyrexia [None]
  - Ocular hyperaemia [None]
  - Erythema [None]
  - Syncope [None]
  - Therapy interrupted [None]
  - Paraesthesia [None]
  - Neuralgia [None]
  - Muscle spasms [None]
  - White blood cell count increased [None]
  - Iron deficiency [None]
  - Red blood cell sedimentation rate increased [None]
  - Blood creatine phosphokinase increased [None]
  - C-reactive protein increased [None]

NARRATIVE: CASE EVENT DATE: 20240926
